FAERS Safety Report 7455614-1 (Version None)
Quarter: 2011Q2

REPORT INFORMATION
  Report Type: 
  Country: None (occurrence: None)
  Receive Date: 20110503
  Receipt Date: 20110420
  Transmission Date: 20111010
  Serious: Yes (Other)
  Sender: FDA-Public Use
  Company Number: DE-ROCHE-773989

PATIENT
  Sex: Male
  Weight: 66 kg

DRUGS (4)
  1. FLUOROURACIL [Concomitant]
     Dates: start: 20110112, end: 20110119
  2. OXALIPLATIN [Concomitant]
     Dates: start: 20110112, end: 20110119
  3. FOLINIC ACID [Concomitant]
     Dates: start: 20110112, end: 20110119
  4. BEVACIZUMAB [Suspect]
     Dosage: DOSE: 5, UNITS NOT PROVIDED.
     Route: 065
     Dates: start: 20110112, end: 20110119

REACTIONS (3)
  - HAEMORRHAGE [None]
  - HAEMOGLOBIN DECREASED [None]
  - VARICES OESOPHAGEAL [None]
